FAERS Safety Report 10568811 (Version 1)
Quarter: 2014Q4

REPORT INFORMATION
  Report Type: Spontaneous
  Country: US (occurrence: US)
  Receive Date: 20141106
  Receipt Date: 20141106
  Transmission Date: 20150529
  Serious: No
  Sender: FDA-Public Use
  Company Number: US-009507513-1410USA015221

PATIENT
  Sex: Female

DRUGS (2)
  1. DR. SCHOLLS CORN/CALLUS REMOVER [Suspect]
     Active Substance: SALICYLIC ACID
     Indication: PRODUCT USED FOR UNKNOWN INDICATION
     Dosage: UNK, UNKNOWN
     Route: 061
  2. DR. SCHOLLS CORN/CALLUS REMOVER [Suspect]
     Active Substance: SALICYLIC ACID
     Dosage: UNK, ONCE
     Route: 061
     Dates: start: 20141012

REACTIONS (1)
  - Drug ineffective [Unknown]
